FAERS Safety Report 7826078-0 (Version None)
Quarter: 2011Q4

REPORT INFORMATION
  Report Type: 
  Country: None (occurrence: None)
  Receive Date: 20111019
  Receipt Date: 20111010
  Transmission Date: 20120403
  Serious: Yes (Other)
  Sender: FDA-Public Use
  Company Number: US-RB-030909-11

PATIENT
  Sex: Male

DRUGS (2)
  1. SUBOXONE [Suspect]
     Indication: DRUG DEPENDENCE
     Route: 060
     Dates: start: 20110501
  2. SUBOXONE [Suspect]
     Dosage: 12 MG DAILY
     Route: 060
     Dates: start: 20110418, end: 20110501

REACTIONS (7)
  - IMPAIRED GASTRIC EMPTYING [None]
  - GASTRIC HYPOMOTILITY [None]
  - THERAPEUTIC RESPONSE UNEXPECTED [None]
  - NAUSEA [None]
  - GASTROINTESTINAL PAIN [None]
  - CHOLELITHIASIS [None]
  - WRONG TECHNIQUE IN DRUG USAGE PROCESS [None]
